FAERS Safety Report 16441807 (Version 1)
Quarter: 2019Q2

REPORT INFORMATION
  Report Type: Report from Study
  Country: None (occurrence: US)
  Receive Date: 20190617
  Receipt Date: 20190617
  Transmission Date: 20190711
  Serious: No
  Sender: FDA-Public Use
  Company Number: US-US WORLDMEDS, LLC-USW201807-001117

PATIENT
  Age: 81 Year
  Sex: Male
  Weight: 95.25 kg

DRUGS (14)
  1. APOKYN [Suspect]
     Active Substance: APOMORPHINE HYDROCHLORIDE
  2. APOKYN [Suspect]
     Active Substance: APOMORPHINE HYDROCHLORIDE
     Route: 058
     Dates: end: 20180714
  3. LOSARTAN. [Concomitant]
     Active Substance: LOSARTAN
     Indication: HYPERTENSION
     Dates: start: 201112
  4. ELIQUIS [Concomitant]
     Active Substance: APIXABAN
     Indication: CARDIAC DISORDER
     Dates: start: 201509
  5. TAMSULOSIN [Concomitant]
     Active Substance: TAMSULOSIN
     Indication: PROSTATOMEGALY
     Dates: start: 201206
  6. RYTARY [Concomitant]
     Active Substance: CARBIDOPA\LEVODOPA
     Indication: PARKINSON^S DISEASE
     Dates: start: 201805
  7. ACYCLOVIR. [Concomitant]
     Active Substance: ACYCLOVIR
     Indication: EYE INFECTION
  8. FOLIC ACID. [Concomitant]
     Active Substance: FOLIC ACID
     Indication: PARKINSON^S DISEASE
     Dates: start: 201301
  9. MEMANTINE. [Concomitant]
     Active Substance: MEMANTINE
     Indication: PARKINSON^S DISEASE
  10. ROSUVASTATIN. [Concomitant]
     Active Substance: ROSUVASTATIN
  11. FUROSEMIDE. [Concomitant]
     Active Substance: FUROSEMIDE
     Indication: CARDIAC DISORDER
     Dates: start: 2016
  12. ROSUVASTATIN. [Concomitant]
     Active Substance: ROSUVASTATIN
  13. MYRBETRIQ [Concomitant]
     Active Substance: MIRABEGRON
     Indication: PROSTATOMEGALY
  14. APOKYN [Suspect]
     Active Substance: APOMORPHINE HYDROCHLORIDE
     Indication: PARKINSON^S DISEASE
     Route: 058
     Dates: start: 20180703, end: 20180714

REACTIONS (8)
  - Hypoacusis [Recovered/Resolved]
  - Malaise [Recovered/Resolved]
  - Feeling abnormal [Recovered/Resolved]
  - Nasal congestion [Recovered/Resolved]
  - Lacrimation increased [Recovered/Resolved]
  - Hypokinesia [Recovered/Resolved]
  - Headache [Recovered/Resolved]
  - Rhinorrhoea [Recovered/Resolved]

NARRATIVE: CASE EVENT DATE: 20180714
